FAERS Safety Report 9609064 (Version 2)
Quarter: 2013Q4

REPORT INFORMATION
  Report Type: Spontaneous
  Country: IT (occurrence: IT)
  Receive Date: 20131009
  Receipt Date: 20131028
  Transmission Date: 20140711
  Serious: Yes (Other)
  Sender: FDA-Public Use
  Company Number: IT-ROCHE-1283723

PATIENT
  Age: 49 Year
  Sex: Female
  Weight: 65 kg

DRUGS (7)
  1. ROACTEMRA [Suspect]
     Indication: RHEUMATOID ARTHRITIS
     Route: 042
     Dates: start: 20130809, end: 20131001
  2. LANSOPRAZOLE [Concomitant]
     Route: 065
  3. ARAVA [Concomitant]
     Route: 065
  4. SANDIMMUN [Concomitant]
     Route: 065
  5. DELTACORTENE [Concomitant]
     Route: 065
  6. PALEXIA [Concomitant]
     Route: 065
  7. LOBIVON [Concomitant]
     Route: 065

REACTIONS (6)
  - Bronchospasm [Recovered/Resolved]
  - Cough [Recovered/Resolved]
  - Feeling hot [Recovered/Resolved]
  - Hyperchlorhydria [Recovered/Resolved]
  - Oedema peripheral [Recovered/Resolved]
  - Pruritus [Recovered/Resolved]
